FAERS Safety Report 5773342-5 (Version None)
Quarter: 2008Q2

REPORT INFORMATION
  Report Type: 
  Country: None (occurrence: None)
  Receive Date: 20080616
  Receipt Date: 20080606
  Transmission Date: 20081010
  Serious: Yes (Other)
  Sender: FDA-Public Use
  Company Number: PHFR2008GB01106

PATIENT

DRUGS (1)
  1. EXELON [Suspect]
     Dosage: 9.5MG/24HR PATCH
     Route: 062

REACTIONS (2)
  - DEMENTIA [None]
  - TREMOR [None]
